FAERS Safety Report 9333083 (Version 3)
Quarter: 2014Q1

REPORT INFORMATION
  Report Type: Report from Study
  Country: US (occurrence: US)
  Receive Date: 20130606
  Receipt Date: 20140127
  Transmission Date: 20141002
  Serious: Yes (Death, Hospitalization, Other)
  Sender: FDA-Public Use
  Company Number: US-ACTELION-A-NJ2012-72487

PATIENT
  Age: 64 Year
  Sex: Female
  Weight: 111.16 kg

DRUGS (8)
  1. VELETRI [Suspect]
     Indication: PULMONARY ARTERIAL HYPERTENSION
     Dosage: 70 NG/KG/MIN
     Route: 041
  2. VELETRI [Suspect]
     Dosage: 83 NG/KG, PER MIN
     Route: 041
     Dates: start: 20110108, end: 20121210
  3. VELETRI [Suspect]
     Dosage: 79 NG/KG/MIN
     Route: 041
  4. FLOLAN [Suspect]
     Dosage: UNK
     Dates: start: 20040408
  5. SILDENAFIL [Concomitant]
  6. COUMADIN [Concomitant]
  7. SPIRONOLACTONE [Concomitant]
     Dosage: 25 MG, UNK
  8. FUROSEMIDE [Concomitant]
     Dosage: 80 MG, UNK

REACTIONS (19)
  - Death [Fatal]
  - Embolism [Unknown]
  - Gastrointestinal haemorrhage [Unknown]
  - Hepatic cirrhosis [Unknown]
  - Pancreatitis acute [Unknown]
  - Urinary tract infection [Unknown]
  - Thrombocytopenia [Unknown]
  - Hypotension [Unknown]
  - Abdominal pain [Unknown]
  - Nausea [Unknown]
  - Diarrhoea [Unknown]
  - Sepsis [Unknown]
  - Pancreatic cyst [Unknown]
  - Abnormal loss of weight [Not Recovered/Not Resolved]
  - Paracentesis [Not Recovered/Not Resolved]
  - Ascites [Not Recovered/Not Resolved]
  - Oedema [Unknown]
  - Vomiting [Not Recovered/Not Resolved]
  - Fluid retention [Unknown]
